FAERS Safety Report 12959405 (Version 1)
Quarter: 2016Q4

REPORT INFORMATION
  Report Type: Spontaneous
  Country: CN (occurrence: CN)
  Receive Date: 20161121
  Receipt Date: 20161121
  Transmission Date: 20170207
  Serious: Yes (Hospitalization)
  Sender: FDA-Public Use
  Company Number: PHHY2016CN152489

PATIENT
  Age: 28 Year
  Sex: Male

DRUGS (2)
  1. SEBIVO [Suspect]
     Active Substance: TELBIVUDINE
     Indication: HEPATITIS B
     Dosage: 600 MG, QD
     Route: 048
     Dates: start: 201405, end: 201409
  2. SEBIVO [Suspect]
     Active Substance: TELBIVUDINE
     Dosage: 600 MG, QD
     Route: 048
     Dates: start: 20161030

REACTIONS (4)
  - Asthenia [Unknown]
  - Hepatitis B [Recovered/Resolved]
  - Ageusia [Unknown]
  - Listless [Unknown]

NARRATIVE: CASE EVENT DATE: 20161030
